FAERS Safety Report 13731829 (Version 1)
Quarter: 2017Q3

REPORT INFORMATION
  Report Type: Other
  Country: None (occurrence: US)
  Receive Date: 20170707
  Receipt Date: 20170707
  Transmission Date: 20171127
  Serious: Yes (Other)
  Sender: FDA-Public Use
  Company Number: US-GUTHY-RENKER LLC-2023091

PATIENT
  Age: 54 Year
  Sex: Female

DRUGS (5)
  1. PROACTIV SOLUTION REPAIRING TREATMENT [Suspect]
     Active Substance: BENZOYL PEROXIDE
     Indication: ACNE
     Route: 061
     Dates: start: 20160205, end: 20160207
  2. PROACTIV RENEWING CLEANSER [Suspect]
     Active Substance: BENZOYL PEROXIDE
     Route: 061
     Dates: start: 20160205, end: 20160207
  3. UNDISCLOSED - MEDICATION FOR DEPRESSION [Concomitant]
     Active Substance: UNSPECIFIED INGREDIENT
  4. UNDISCLOSED - MEDICATION FOR ELEVATED CHOLESTEROL [Concomitant]
     Active Substance: UNSPECIFIED INGREDIENT
  5. BENADRYL [Concomitant]
     Active Substance: DIPHENHYDRAMINE HYDROCHLORIDE

REACTIONS (1)
  - Urticaria [Recovered/Resolved]

NARRATIVE: CASE EVENT DATE: 20160205
